FAERS Safety Report 25379219 (Version 1)
Quarter: 2025Q2

REPORT INFORMATION
  Report Type: Spontaneous
  Country: ES (occurrence: ES)
  Receive Date: 20250530
  Receipt Date: 20250530
  Transmission Date: 20250716
  Serious: Yes (Life-Threatening)
  Sender: MERCK SHARP & DOHME LLC
  Company Number: ES-ASTRAZENECA-202410GLO021995ES

PATIENT
  Age: 40 Year
  Sex: Female
  Weight: 53 kg

DRUGS (12)
  1. PEMBROLIZUMAB [Suspect]
     Active Substance: PEMBROLIZUMAB
     Indication: Triple negative breast cancer
     Dosage: 200 MG, Q3W
     Dates: start: 20240521, end: 20241008
  2. CARBOPLATIN [Suspect]
     Active Substance: CARBOPLATIN
     Indication: Triple negative breast cancer
     Dosage: 1.5 AUC, ONCE EVERY 3 WK
     Route: 050
     Dates: start: 20240521, end: 20240813
  3. DOXORUBICIN [Suspect]
     Active Substance: DOXORUBICIN
     Indication: Triple negative breast cancer
     Dosage: 60 MG/M2, ONCE EVERY 3 WK
     Route: 050
     Dates: start: 20240820, end: 20241008
  4. EUTHYROX [Concomitant]
     Active Substance: LEVOTHYROXINE SODIUM
     Indication: Hypothyroidism
     Route: 050
     Dates: start: 20240910
  5. EUTHYROX [Concomitant]
     Active Substance: LEVOTHYROXINE SODIUM
     Indication: Hypothyroidism
     Dosage: 75 MG, QD
     Route: 050
     Dates: start: 20240910
  6. EUTHYROX [Concomitant]
     Active Substance: LEVOTHYROXINE SODIUM
     Indication: Hypothyroidism
     Route: 050
     Dates: start: 20240820, end: 20240909
  7. CYCLOPHOSPHAMIDE [Suspect]
     Active Substance: CYCLOPHOSPHAMIDE
     Indication: Triple negative breast cancer
     Dosage: 948 MG/M2, ONCE EVERY 3 WK
     Route: 050
     Dates: start: 20240820, end: 20240820
  8. CYCLOPHOSPHAMIDE [Suspect]
     Active Substance: CYCLOPHOSPHAMIDE
     Indication: Triple negative breast cancer
     Dosage: 754 MG/M2, ONCE EVERY 3 WK
     Route: 050
     Dates: start: 20240917, end: 20241008
  9. AMOXICILLIN [Concomitant]
     Active Substance: AMOXICILLIN
     Indication: Viral infection
     Dosage: 875 MILLIGRAM, TID
     Route: 050
     Dates: start: 20240613, end: 20240625
  10. PACLITAXEL [Suspect]
     Active Substance: PACLITAXEL
     Indication: Triple negative breast cancer
     Dosage: 80 MG/M2, ONCE EVERY 3 WK
     Route: 050
     Dates: start: 20240521, end: 20240813
  11. PREDNISONE [Concomitant]
     Active Substance: PREDNISONE
     Indication: Myopericarditis
     Route: 050
     Dates: start: 20241023
  12. PREDNISONE [Concomitant]
     Active Substance: PREDNISONE
     Indication: Myopericarditis
     Dosage: 1 MG/KG, QD
     Route: 050
     Dates: start: 20241024

REACTIONS (1)
  - Myopericarditis [Not Recovered/Not Resolved]

NARRATIVE: CASE EVENT DATE: 20241008
